FAERS Safety Report 10563933 (Version 1)
Quarter: 2014Q4

REPORT INFORMATION
  Report Type: Spontaneous
  Country: US (occurrence: US)
  Receive Date: 20141104
  Receipt Date: 20141104
  Transmission Date: 20150529
  Serious: Yes (Other)
  Sender: FDA-Public Use
  Company Number: US-009507513-1411USA000933

PATIENT
  Sex: Female

DRUGS (1)
  1. ALENDRONATE SODIUM. [Suspect]
     Active Substance: ALENDRONATE SODIUM
     Indication: OSTEOPOROSIS POSTMENOPAUSAL
     Dosage: EITHER 10MG/ DAY OR WHEN AVAILABLE 70 MG/WEEK, 7 YEARS (DURATION RANGE 6-11 YEARS)
     Route: 048

REACTIONS (1)
  - Atypical femur fracture [Recovered/Resolved]
